FAERS Safety Report 12641263 (Version 1)
Quarter: 2016Q3

REPORT INFORMATION
  Report Type: Spontaneous
  Country: US (occurrence: US)
  Receive Date: 20160810
  Receipt Date: 20160810
  Transmission Date: 20161109
  Serious: No
  Sender: FDA-Public Use
  Company Number: US-PFIZER INC-2016366861

PATIENT
  Age: 38 Year
  Sex: Male
  Weight: 135.17 kg

DRUGS (1)
  1. GABAPENTIN. [Suspect]
     Active Substance: GABAPENTIN
     Indication: DIABETIC NEUROPATHY
     Dosage: TWO 600 MG PILLS IN THE AM AND ONE 600MG PILL AT NIGHT DAILY
     Route: 048
     Dates: start: 2015, end: 2016

REACTIONS (1)
  - Drug ineffective for unapproved indication [Unknown]
